FAERS Safety Report 4379026-2 (Version None)
Quarter: 2004Q2

REPORT INFORMATION
  Report Type: 
  Country: None (occurrence: None)
  Receive Date: 20040601
  Receipt Date: 20040326
  Transmission Date: 20050107
  Serious: No
  Sender: FDA-Public Use
  Company Number: WAES 0403USA02466

PATIENT
  Age: 67 Year
  Sex: Female

DRUGS (7)
  1. ZETIA [Suspect]
     Indication: HYPERCHOLESTEROLAEMIA
     Dosage: 10 MG/DAILY/PO
     Route: 048
     Dates: start: 20040126
  2. AVANDIA [Concomitant]
  3. DIOVAN [Concomitant]
  4. CALCIUM [Concomitant]
  5. GLIPIZIDE [Concomitant]
  6. GLUCOSAMINE [Concomitant]
  7. VITAMIN E [Concomitant]

REACTIONS (3)
  - EYE IRRITATION [None]
  - HYPOTRICHOSIS [None]
  - KERATOCONJUNCTIVITIS SICCA [None]
